FAERS Safety Report 16890080 (Version 1)
Quarter: 2019Q4

REPORT INFORMATION
  Report Type: Report from Study
  Country: None (occurrence: CO)
  Receive Date: 20191007
  Receipt Date: 20191007
  Transmission Date: 20200122
  Serious: Yes (Hospitalization, Other)
  Sender: FDA-Public Use
  Company Number: CO-ABBVIE-19K-036-2926994-00

PATIENT
  Age: 3 Month
  Sex: Male
  Weight: 4 kg

DRUGS (1)
  1. SYNAGIS [Suspect]
     Active Substance: PALIVIZUMAB
     Indication: BRONCHOPULMONARY DYSPLASIA
     Route: 030
     Dates: start: 20190620, end: 20190816

REACTIONS (5)
  - Irritability [Recovering/Resolving]
  - Vomiting [Recovering/Resolving]
  - Large intestinal stenosis [Recovering/Resolving]
  - Constipation [Recovering/Resolving]
  - Rectal stenosis [Recovering/Resolving]

NARRATIVE: CASE EVENT DATE: 20190910
